FAERS Safety Report 14426383 (Version 1)
Quarter: 2018Q1

REPORT INFORMATION
  Report Type: Spontaneous
  Country: BR (occurrence: BR)
  Receive Date: 20180123
  Receipt Date: 20180123
  Transmission Date: 20180509
  Serious: Yes (Hospitalization, Other)
  Sender: FDA-Public Use
  Company Number: BR-BAYER-2018-009031

PATIENT
  Age: 41 Year
  Sex: Female

DRUGS (6)
  1. MIRENA [Suspect]
     Active Substance: LEVONORGESTREL
     Indication: CONTRACEPTION
     Dosage: 20 MCG/24HR, CONT
     Route: 015
     Dates: start: 20170424
  2. MIRENA [Suspect]
     Active Substance: LEVONORGESTREL
     Indication: CONTRACEPTION
     Dosage: 20 MCG/24HR, CONT
     Route: 015
     Dates: start: 2011, end: 20170424
  3. MIRENA [Suspect]
     Active Substance: LEVONORGESTREL
  4. ESCITALOPRAM [Concomitant]
     Active Substance: ESCITALOPRAM OXALATE
     Dosage: 30 MG, QD
     Dates: start: 201707
  5. CLONAZEPAM. [Concomitant]
     Active Substance: CLONAZEPAM
     Dosage: 1 MG, QD
     Dates: start: 201707
  6. ALPRAZOLAM. [Concomitant]
     Active Substance: ALPRAZOLAM
     Dosage: 20 MG, QD
     Dates: start: 201707

REACTIONS (20)
  - Abdominal pain lower [None]
  - Device ineffective [None]
  - Menorrhagia [None]
  - Dysmenorrhoea [None]
  - Ectopic pregnancy with contraceptive device [None]
  - Device use issue [None]
  - Acne [None]
  - Klebsiella infection [None]
  - Alopecia [None]
  - Skin discolouration [None]
  - Peripheral swelling [None]
  - Pelvic infection [None]
  - Haemorrhagic anaemia [None]
  - Swelling [None]
  - Vaginal infection [None]
  - Vaginal haemorrhage [None]
  - Procedural pain [None]
  - Onychomadesis [None]
  - Genital haemorrhage [None]
  - Abdominal pain lower [None]

NARRATIVE: CASE EVENT DATE: 2011
